FAERS Safety Report 21223475 (Version 4)
Quarter: 2022Q4

REPORT INFORMATION
  Report Type: Spontaneous
  Country: US (occurrence: US)
  Receive Date: 20220817
  Receipt Date: 20221011
  Transmission Date: 20230113
  Serious: Yes (Other)
  Sender: FDA-Public Use
  Company Number: US-GLENMARK PHARMACEUTICALS-2022GMK074393

PATIENT

DRUGS (1)
  1. ZONISAMIDE [Suspect]
     Active Substance: ZONISAMIDE
     Indication: Seizure
     Dosage: UNK UNK, OD
     Route: 065

REACTIONS (5)
  - Blindness transient [Unknown]
  - Ocular hyperaemia [Unknown]
  - Recalled product administered [Unknown]
  - Muscular weakness [Unknown]
  - Decreased appetite [Unknown]
